FAERS Safety Report 21646843 (Version 1)
Quarter: 2022Q4

REPORT INFORMATION
  Report Type: Spontaneous
  Country: US (occurrence: US)
  Receive Date: 20221127
  Receipt Date: 20221127
  Transmission Date: 20230113
  Serious: Yes (Other)
  Sender: FDA-Public Use
  Company Number: US-TEVA-2022-US-2828236

PATIENT
  Age: 37 Month
  Sex: Male

DRUGS (5)
  1. VINCRISTINE [Suspect]
     Active Substance: VINCRISTINE
     Indication: Acute lymphocytic leukaemia
     Dosage: RECEIVED A TOTAL OF 21 DOSES DURING INDUCTION THERAPY UNDER DFCI 11-001 PROTOCOL
     Route: 065
  2. ASPARAGINASE [Concomitant]
     Active Substance: ASPARAGINASE
     Indication: Acute lymphocytic leukaemia
     Dosage: RECEIVED UNDER DFCI PROTOCOL
     Route: 065
  3. METHOTREXATE [Concomitant]
     Active Substance: METHOTREXATE
     Indication: Acute lymphocytic leukaemia
     Dosage: RECEIVED UNDER DFCI PROTOCOL
     Route: 065
  4. MERCAPTOPURINE [Concomitant]
     Active Substance: MERCAPTOPURINE
     Indication: Acute lymphocytic leukaemia
     Dosage: RECEIVED UNDER DFCI PROTOCOL
     Route: 065
  5. DOXORUBICIN [Concomitant]
     Active Substance: DOXORUBICIN
     Indication: Acute lymphocytic leukaemia
     Dosage: RECEIVED UNDER DFCI PROTOCOL
     Route: 065

REACTIONS (2)
  - Neurotoxicity [Recovering/Resolving]
  - Gait inability [Recovering/Resolving]
